FAERS Safety Report 5095517-3 (Version None)
Quarter: 2006Q3

REPORT INFORMATION
  Report Type: 
  Country: None (occurrence: None)
  Receive Date: 20060831
  Receipt Date: 20060831
  Transmission Date: 20061208
  Serious: Yes (Life-Threatening, Hospitalization)
  Sender: FDA-Public Use
  Company Number: None

PATIENT
  Age: 77 Year
  Sex: Female
  Weight: 68 kg

DRUGS (4)
  1. DYAZIDE [Suspect]
     Dosage: CHRONIC ONE DAILY
  2. TOPROL-XL [Concomitant]
  3. NAPROXEN [Concomitant]
  4. PERCOCET [Concomitant]

REACTIONS (4)
  - ATRIAL FIBRILLATION [None]
  - HYPONATRAEMIA [None]
  - NAUSEA [None]
  - POST PROCEDURAL COMPLICATION [None]
